FAERS Safety Report 6907934-4 (Version None)
Quarter: 2010Q3

REPORT INFORMATION
  Report Type: 
  Country: None (occurrence: None)
  Receive Date: 20100805
  Receipt Date: 20100730
  Transmission Date: 20110219
  Serious: Yes (Hospitalization)
  Sender: FDA-Public Use
  Company Number: FR-MPIJNJ-2010-02483

PATIENT

DRUGS (12)
  1. VELCADE [Suspect]
     Indication: MULTIPLE MYELOMA
     Dosage: 2.5 MG, UNK
     Dates: start: 20081125, end: 20081204
  2. DOXORUBICIN HCL [Concomitant]
     Indication: MULTIPLE MYELOMA
     Dosage: 57.6 MG, UNK
     Route: 042
     Dates: start: 20081125, end: 20081204
  3. DEXAMETHASONE [Concomitant]
     Indication: MULTIPLE MYELOMA
     Dosage: 40 MG, UNK
     Route: 048
     Dates: start: 20081125, end: 20081204
  4. THERAPEUTIC RADIOPHARMACEUTICALS [Concomitant]
     Indication: MULTIPLE MYELOMA
     Dosage: UNK
     Dates: start: 20081201, end: 20081217
  5. LERCAN [Concomitant]
     Dosage: UNK
  6. FUROSEMIDE [Concomitant]
     Dosage: UNK
     Route: 048
  7. BISOPROLOL FUMARATE [Concomitant]
     Dosage: UNK
  8. ATARAX [Concomitant]
     Dosage: UNK
  9. MYOLASTAN [Concomitant]
     Dosage: UNK
  10. PARACETAMOL [Concomitant]
     Dosage: UNK
     Route: 048
  11. RAMIPRIL [Concomitant]
     Dosage: UNK
     Route: 048
  12. AUGMENTIN '125' [Concomitant]
     Dosage: UNK
     Dates: start: 20081202, end: 20081209

REACTIONS (1)
  - GASTROINTESTINAL HAEMORRHAGE [None]
